FAERS Safety Report 13879931 (Version 1)
Quarter: 2017Q3

REPORT INFORMATION
  Report Type: Spontaneous
  Country: US (occurrence: US)
  Receive Date: 20170818
  Receipt Date: 20170818
  Transmission Date: 20171127
  Serious: No
  Sender: FDA-Public Use
  Company Number: US-BAYER-2017-158156

PATIENT
  Age: 58 Year
  Sex: Female
  Weight: 73 kg

DRUGS (3)
  1. ZOLOFT [Concomitant]
     Active Substance: SERTRALINE HYDROCHLORIDE
     Dosage: UNK
  2. MIRALAX [Suspect]
     Active Substance: POLYETHYLENE GLYCOL 3350
     Indication: COLONOSCOPY
     Dosage: 245 G, UNK
     Route: 048
     Dates: start: 20170817
  3. MIRALAX [Suspect]
     Active Substance: POLYETHYLENE GLYCOL 3350
     Indication: COLONOSCOPY
     Dosage: 118 G, UNK
     Dates: start: 20170818

REACTIONS (5)
  - Inappropriate prescribing [None]
  - Off label use [Unknown]
  - Product use in unapproved indication [Unknown]
  - Inappropriate prescribing [None]
  - Wrong technique in product usage process [None]

NARRATIVE: CASE EVENT DATE: 201708
